FAERS Safety Report 8618493 (Version 2)
Quarter: 2013Q3

REPORT INFORMATION
  Report Type: Spontaneous
  Country: US (occurrence: US)
  Receive Date: 20120618
  Receipt Date: 20130723
  Transmission Date: 20140515
  Serious: Yes (Hospitalization, Disabling)
  Sender: FDA-Public Use
  Company Number: US-ASTRAZENECA-2012SE36450

PATIENT
  Age: 22055 Day
  Sex: Female
  Weight: 150.1 kg

DRUGS (11)
  1. NEXIUM [Suspect]
     Indication: CHOLELITHIASIS
     Dosage: 2 TIMES
     Route: 048
     Dates: end: 2003
  2. NEXIUM [Suspect]
     Indication: GASTROOESOPHAGEAL REFLUX DISEASE
     Dosage: 2 TIMES
     Route: 048
     Dates: end: 2003
  3. NEXIUM [Suspect]
     Indication: GASTRIC DISORDER
     Dosage: 2 TIMES
     Route: 048
     Dates: end: 2003
  4. PRILOSEC [Suspect]
     Indication: GASTROOESOPHAGEAL REFLUX DISEASE
     Dosage: TWICE DAILY
     Route: 048
  5. TAGAMET [Suspect]
     Route: 065
  6. ZANTAC [Concomitant]
     Dosage: 2 DAILY
  7. ALBUTEROL [Concomitant]
     Dosage: 2 DAILY
  8. PEPCID [Concomitant]
  9. VICODIN [Concomitant]
  10. ADVAIR [Concomitant]
  11. LOPRESSOR [Concomitant]
     Dates: start: 20080604

REACTIONS (25)
  - Musculoskeletal disorder [Unknown]
  - Back disorder [Unknown]
  - Musculoskeletal discomfort [Unknown]
  - Heart rate irregular [Unknown]
  - Osteoporosis [Unknown]
  - Multiple fractures [Unknown]
  - Gait disturbance [Unknown]
  - Bone disorder [Unknown]
  - Fall [Unknown]
  - Acute stress disorder [Unknown]
  - Panic attack [Unknown]
  - Anxiety [Unknown]
  - Poor quality sleep [Unknown]
  - Cardiovascular disorder [Unknown]
  - Vitamin D deficiency [Unknown]
  - Lower limb fracture [Unknown]
  - Arthropathy [Unknown]
  - Spinal fracture [Unknown]
  - Wound [Unknown]
  - Arthritis [Unknown]
  - Lumbar spinal stenosis [Unknown]
  - Intervertebral disc disorder [Unknown]
  - Hypoaesthesia [Unknown]
  - Abdominal pain [Unknown]
  - Depression [Unknown]
